FAERS Safety Report 6656127-7 (Version None)
Quarter: 2010Q1

REPORT INFORMATION
  Report Type: 
  Country: None (occurrence: None)
  Receive Date: 20100329
  Receipt Date: 20100322
  Transmission Date: 20100710
  Serious: Yes (Other)
  Sender: FDA-Public Use
  Company Number: B0643433A

PATIENT
  Age: 23 Year
  Sex: Female

DRUGS (1)
  1. ZINNAT [Suspect]
     Indication: DRUG USE FOR UNKNOWN INDICATION
     Dosage: 1TAB TWICE PER DAY
     Route: 065
     Dates: start: 20100320

REACTIONS (2)
  - ABDOMINAL PAIN [None]
  - SYNCOPE [None]
